FAERS Safety Report 4600672-2 (Version None)
Quarter: 2005Q1

REPORT INFORMATION
  Report Type: 
  Country: None (occurrence: None)
  Receive Date: 20050304
  Receipt Date: 20050217
  Transmission Date: 20050727
  Serious: Yes (Hospitalization)
  Sender: FDA-Public Use
  Company Number: DE-YAMANOUCHI-YEHQ20050249

PATIENT
  Sex: Female

DRUGS (2)
  1. VESICARE [Suspect]
     Dosage: PO
     Route: 048
  2. ASPIRIN TAB [Concomitant]

REACTIONS (1)
  - CIRCULATORY COLLAPSE [None]
